FAERS Safety Report 6262716-4 (Version None)
Quarter: 2009Q3

REPORT INFORMATION
  Report Type: 
  Country: None (occurrence: None)
  Receive Date: 20090708
  Receipt Date: 20090627
  Transmission Date: 20100115
  Serious: Yes (Hospitalization)
  Sender: FDA-Public Use
  Company Number: 2009AP002632

PATIENT
  Age: 50 Year
  Sex: Female

DRUGS (8)
  1. AMLODIPINE BESYLATE [Suspect]
     Indication: HYPERTENSION
     Dosage: 10 MG;QD;GT
  2. NICARDIPINE HYDROCHLORIDE [Concomitant]
  3. FOSPHENYTOIN [Concomitant]
  4. FENTANYL-100 [Concomitant]
  5. PROPOFOL [Concomitant]
  6. FAMOTIDINE [Concomitant]
  7. VANCOMYCIN [Concomitant]
  8. LOSARTAN POTASSIUM [Concomitant]

REACTIONS (5)
  - ANGIOEDEMA [None]
  - CARDIAC ARREST [None]
  - NERVOUS SYSTEM DISORDER [None]
  - PYREXIA [None]
  - RESPIRATORY DISORDER [None]
